FAERS Safety Report 6450118-7 (Version None)
Quarter: 2009Q4

REPORT INFORMATION
  Report Type: 
  Country: None (occurrence: None)
  Receive Date: 20091123
  Receipt Date: 20091022
  Transmission Date: 20100525
  Serious: No
  Sender: FDA-Public Use
  Company Number: US-BAYER-200937127NA

PATIENT
  Sex: Female

DRUGS (3)
  1. AVELOX [Suspect]
     Indication: SINUSITIS
     Dates: start: 20080101
  2. AVELOX [Suspect]
     Dates: start: 20090301
  3. AVELOX [Suspect]
     Dates: start: 20091017

REACTIONS (2)
  - NAUSEA [None]
  - SCIATICA [None]
